FAERS Safety Report 16398042 (Version 1)
Quarter: 2019Q2

REPORT INFORMATION
  Report Type: Spontaneous
  Country: US (occurrence: US)
  Receive Date: 20190606
  Receipt Date: 20190606
  Transmission Date: 20190711
  Serious: No
  Sender: FDA-Public Use
  Company Number: US-JNJFOC-20190543421

PATIENT
  Sex: Female
  Weight: 60.78 kg

DRUGS (3)
  1. CENTRUM [Concomitant]
     Active Substance: VITAMINS
     Indication: BLADDER DISORDER
     Route: 065
  2. TYLENOL EXTRA STRENGTH [Suspect]
     Active Substance: ACETAMINOPHEN
     Indication: SCIATICA
     Dosage: EVERY 6 HOURS AS NEEDED
     Route: 048
  3. CRANBERRY. [Concomitant]
     Active Substance: CRANBERRY
     Indication: BLADDER DISORDER
     Route: 065

REACTIONS (1)
  - Incorrect dose administered [Unknown]
